FAERS Safety Report 9223283 (Version 3)
Quarter: 2013Q2

REPORT INFORMATION
  Report Type: Spontaneous
  Country: US (occurrence: US)
  Receive Date: 20130410
  Receipt Date: 20130515
  Transmission Date: 20140414
  Serious: Yes (Death, Other)
  Sender: FDA-Public Use
  Company Number: US-PFIZER INC-2013111579

PATIENT
  Age: 8 Year
  Sex: Male

DRUGS (1)
  1. EPIPEN [Suspect]
     Dosage: UNK

REACTIONS (4)
  - Drug ineffective [Fatal]
  - Cardiac arrest [Fatal]
  - Respiratory arrest [Fatal]
  - Hypersensitivity [Fatal]
